FAERS Safety Report 19857261 (Version 1)
Quarter: 2021Q3

REPORT INFORMATION
  Report Type: Report from Study
  Country: None (occurrence: US)
  Receive Date: 20210921
  Receipt Date: 20210921
  Transmission Date: 20211014
  Serious: Yes (Other)
  Sender: FDA-Public Use
  Company Number: US-ABBVIE-21K-163-3779232-00

PATIENT
  Age: 13 Year
  Sex: Female

DRUGS (3)
  1. HUMIRA [Suspect]
     Active Substance: ADALIMUMAB
     Indication: JUVENILE IDIOPATHIC ARTHRITIS
     Route: 058
  2. PFIZER?BIONTECH COVID?19 VACCINE [Concomitant]
     Active Substance: TOZINAMERAN
     Indication: COVID-19 IMMUNISATION
     Dosage: 1ST DOSE
     Route: 030
     Dates: start: 20210522, end: 20210522
  3. PFIZER?BIONTECH COVID?19 VACCINE [Concomitant]
     Active Substance: TOZINAMERAN
     Dosage: 2ND DOSE
     Route: 030
     Dates: start: 20210612, end: 20210612

REACTIONS (8)
  - Ear tube insertion [Recovering/Resolving]
  - Cystitis [Unknown]
  - Vitamin D decreased [Unknown]
  - Depression [Unknown]
  - Device dislocation [Recovering/Resolving]
  - Cataract [Unknown]
  - Oxygen saturation decreased [Unknown]
  - Autism spectrum disorder [Unknown]

NARRATIVE: CASE EVENT DATE: 202101
